FAERS Safety Report 6413914-8 (Version None)
Quarter: 2009Q4

REPORT INFORMATION
  Report Type: 
  Country: None (occurrence: None)
  Receive Date: 20091026
  Receipt Date: 20091019
  Transmission Date: 20100525
  Serious: Yes (Hospitalization, Other)
  Sender: FDA-Public Use
  Company Number: JP-JNJFOC-20090201517

PATIENT
  Sex: Male
  Weight: 47 kg

DRUGS (13)
  1. ITRIZOLE [Suspect]
     Route: 041
  2. ITRIZOLE [Suspect]
     Indication: BRONCHOPULMONARY ASPERGILLOSIS
     Route: 041
  3. ITRIZOLE [Suspect]
     Route: 048
  4. ITRIZOLE [Suspect]
     Route: 048
  5. PREDNISOLONE [Concomitant]
     Indication: ORGANISING PNEUMONIA
     Route: 048
  6. BAKTAR [Concomitant]
     Indication: ORGANISING PNEUMONIA
     Route: 048
  7. CLARITHROMYCIN [Concomitant]
     Indication: ATYPICAL MYCOBACTERIAL INFECTION
     Route: 048
  8. AMLODIN [Concomitant]
     Indication: HYPERTENSION
     Route: 048
  9. INNOLET R [Concomitant]
     Indication: DIABETES MELLITUS
     Route: 003
  10. LUPRAC [Concomitant]
     Route: 048
  11. LASIX [Concomitant]
     Route: 048
  12. LASIX [Concomitant]
     Route: 042
  13. LANSOPRAZOLE [Concomitant]
     Indication: ORGANISING PNEUMONIA
     Route: 048

REACTIONS (4)
  - DYSPNOEA [None]
  - OEDEMA PERIPHERAL [None]
  - RENAL FAILURE [None]
  - WEIGHT INCREASED [None]
